FAERS Safety Report 7208389-5 (Version None)
Quarter: 2011Q1

REPORT INFORMATION
  Report Type: 
  Country: None (occurrence: None)
  Receive Date: 20110104
  Receipt Date: 20101229
  Transmission Date: 20110831
  Serious: Yes (Life-Threatening, Hospitalization)
  Sender: FDA-Public Use
  Company Number: PHHY2010CA50660

PATIENT
  Sex: Male

DRUGS (1)
  1. CLOZARIL [Suspect]
     Indication: SCHIZOAFFECTIVE DISORDER
     Dosage: 450 MG/DAILY
     Dates: start: 19981117

REACTIONS (6)
  - RESPIRATORY FAILURE [None]
  - PNEUMONIA [None]
  - TUMOUR EXCISION [None]
  - MYASTHENIA GRAVIS [None]
  - HYPOCALCAEMIA [None]
  - THYMOMA [None]
